FAERS Safety Report 9786481 (Version 2)
Quarter: 2014Q3

REPORT INFORMATION
  Report Type: Spontaneous
  Country: FI (occurrence: FI)
  Receive Date: 20131227
  Receipt Date: 20140728
  Transmission Date: 20150326
  Serious: Yes (Hospitalization, Disabling)
  Sender: FDA-Public Use
  Company Number: FI-AMGEN-FINSP2013090317

PATIENT
  Age: 80 Year
  Sex: Male

DRUGS (8)
  1. CALCICHEW D3 FORTE [Concomitant]
     Active Substance: CALCIUM\CHOLECALCIFEROL
     Route: 048
  2. PREDNISONE. [Concomitant]
     Active Substance: PREDNISONE
     Indication: PROSTATE CANCER
     Dosage: 5+5MG
     Route: 048
     Dates: start: 20111006
  3. ABIRATERONE [Concomitant]
     Active Substance: ABIRATERONE
     Dosage: 1000 MG, UNK
     Route: 048
     Dates: start: 20111006, end: 20130213
  4. PANADOL                            /00020001/ [Concomitant]
     Route: 048
  5. PROCREN [Concomitant]
     Active Substance: LEUPROLIDE ACETATE
     Route: 058
  6. XGEVA [Suspect]
     Active Substance: DENOSUMAB
     Indication: METASTASES TO BONE
     Dosage: UNK
     Route: 058
     Dates: start: 20120116, end: 20130213
  7. THYROXIN [Concomitant]
     Active Substance: LEVOTHYROXINE
     Dosage: UNK
     Route: 048
  8. SOMAC [Concomitant]
     Active Substance: PANTOPRAZOLE SODIUM
     Dosage: UNK
     Route: 048

REACTIONS (1)
  - Osteonecrosis of jaw [Recovered/Resolved with Sequelae]

NARRATIVE: CASE EVENT DATE: 20120515
